FAERS Safety Report 6885817-6 (Version None)
Quarter: 2010Q3

REPORT INFORMATION
  Report Type: 
  Country: None (occurrence: None)
  Receive Date: 20100729
  Receipt Date: 20080725
  Transmission Date: 20110219
  Serious: No
  Sender: FDA-Public Use
  Company Number: US-PFIZER INC-2008063041

PATIENT
  Sex: Female
  Weight: 55.9 kg

DRUGS (9)
  1. CELEBREX [Suspect]
     Indication: SPONDYLITIS
     Dates: start: 20080725
  2. SYNTHROID [Concomitant]
  3. ACETYLSALICYLIC ACID SRT [Concomitant]
  4. DESVENLAFAXINE [Concomitant]
  5. PLAVIX [Concomitant]
  6. COVERA-HS [Concomitant]
  7. METOPROLOL TARTRATE [Concomitant]
  8. BUPROPION [Concomitant]
  9. CLONAZEPAM [Concomitant]

REACTIONS (1)
  - HYPOAESTHESIA [None]
